FAERS Safety Report 6845608-9 (Version None)
Quarter: 2010Q3

REPORT INFORMATION
  Report Type: 
  Country: None (occurrence: None)
  Receive Date: 20100713
  Receipt Date: 20100705
  Transmission Date: 20110219
  Serious: Yes (Death, Hospitalization)
  Sender: FDA-Public Use
  Company Number: 2010US002658

PATIENT
  Age: 49 Year
  Sex: Female

DRUGS (3)
  1. PROGRAF [Suspect]
     Indication: LIVER TRANSPLANT
  2. CELLCEPT [Concomitant]
  3. PREDNISONE TAB [Concomitant]

REACTIONS (9)
  - BONE MARROW FAILURE [None]
  - CEREBRAL INFARCTION [None]
  - GRAFT VERSUS HOST DISEASE [None]
  - HEMIPLEGIA [None]
  - ILEUS [None]
  - PANCYTOPENIA [None]
  - RASH ERYTHEMATOUS [None]
  - RASH MACULO-PAPULAR [None]
  - SEPSIS [None]
